FAERS Safety Report 7834090-0 (Version None)
Quarter: 2011Q4

REPORT INFORMATION
  Report Type: 
  Country: None (occurrence: None)
  Receive Date: 20111024
  Receipt Date: 20111024
  Transmission Date: 20120403
  Serious: Yes (Life-Threatening, Other)
  Sender: FDA-Public Use
  Company Number: None

PATIENT
  Age: 55 Year
  Sex: Female
  Weight: 95.254 kg

DRUGS (1)
  1. EFFIENT [Suspect]
     Indication: STENT PLACEMENT
     Dosage: 10MG
     Route: 048
     Dates: start: 20111013, end: 20111022

REACTIONS (8)
  - DYSPNOEA [None]
  - ABDOMINAL PAIN UPPER [None]
  - CONTUSION [None]
  - MASS [None]
  - MALAISE [None]
  - DIARRHOEA [None]
  - ASTHENIA [None]
  - HEART RATE INCREASED [None]
